FAERS Safety Report 11844961 (Version 2)
Quarter: 2015Q4

REPORT INFORMATION
  Report Type: Report from Study
  Country: BR (occurrence: BR)
  Receive Date: 20151217
  Receipt Date: 20151222
  Transmission Date: 20160305
  Serious: Yes (Other)
  Sender: FDA-Public Use
  Company Number: PHHY2015BR150859

PATIENT
  Sex: Female
  Weight: 50 kg

DRUGS (5)
  1. FOLIC ACID. [Concomitant]
     Active Substance: FOLIC ACID
     Indication: SICKLE CELL ANAEMIA
     Dosage: 1 DF OF 5 MG, QD
     Route: 048
  2. EXJADE [Suspect]
     Active Substance: DEFERASIROX
     Indication: SICKLE CELL ANAEMIA
     Dosage: 20 MG/KG, (2 DF OF 500 MG) QD
     Route: 048
     Dates: start: 2006, end: 2011
  3. VITAMIN D [Concomitant]
     Active Substance: CHOLECALCIFEROL
     Indication: PRODUCT USED FOR UNKNOWN INDICATION
     Dosage: 1 DF, QD
     Route: 048
  4. EXJADE [Suspect]
     Active Substance: DEFERASIROX
     Dosage: 30 MG/KG, (3 DF OF 500 MG), QD
     Route: 048
     Dates: start: 2013
  5. DEPAKENE [Concomitant]
     Active Substance: VALPROIC ACID
     Indication: SEIZURE
     Dosage: 7.5 ML, Q8H
     Route: 048
     Dates: start: 2004

REACTIONS (19)
  - Malaise [Recovered/Resolved]
  - Oral discharge [Recovered/Resolved]
  - Erythema [Recovered/Resolved]
  - Poisoning [Recovered/Resolved]
  - Abdominal pain upper [Unknown]
  - Liver disorder [Recovering/Resolving]
  - Gait disturbance [Unknown]
  - Hepatic steatosis [Recovered/Resolved]
  - Deformity [Unknown]
  - Cerebral infarction [Unknown]
  - Mass [Recovered/Resolved]
  - Dysphagia [Unknown]
  - Pruritus [Recovered/Resolved]
  - Nausea [Unknown]
  - Vomiting [Recovered/Resolved]
  - Hepatomegaly [Unknown]
  - Blood iron increased [Recovered/Resolved]
  - Mouth haemorrhage [Recovered/Resolved]
  - Choking [Unknown]

NARRATIVE: CASE EVENT DATE: 2006
